FAERS Safety Report 18218349 (Version 1)
Quarter: 2020Q3

REPORT INFORMATION
  Report Type: Spontaneous
  Country: US (occurrence: US)
  Receive Date: 20200901
  Receipt Date: 20200901
  Transmission Date: 20201103
  Serious: Yes (Other)
  Sender: FDA-Public Use
  Company Number: US-LUPIN PHARMACEUTICALS INC.-2020-05109

PATIENT
  Sex: Male
  Weight: 1.71 kg

DRUGS (7)
  1. AZITHROMYCIN ANHYDROUS. [Suspect]
     Active Substance: AZITHROMYCIN ANHYDROUS
     Indication: COVID-19
     Dosage: UNK
     Route: 064
  2. BETAMETHASONE. [Suspect]
     Active Substance: BETAMETHASONE
     Indication: MATERNAL THERAPY TO ENHANCE FOETAL LUNG MATURITY
     Dosage: UNK
     Route: 064
  3. HEPARIN [Suspect]
     Active Substance: HEPARIN SODIUM
     Indication: EVIDENCE BASED TREATMENT
     Dosage: UNK
     Route: 064
  4. TOCILIZUMAB. [Suspect]
     Active Substance: TOCILIZUMAB
     Indication: COVID-19
     Dosage: 400 MILLIGRAM ONCE
     Route: 064
  5. HYDROXYCHLOROQUINE [Suspect]
     Active Substance: HYDROXYCHLOROQUINE
     Indication: COVID-19
     Dosage: UNK
     Route: 064
  6. MAGNESIUM [Suspect]
     Active Substance: MAGNESIUM
     Indication: PROPHYLAXIS
     Dosage: UNK
     Route: 064
  7. CEFTRIAXONE. [Suspect]
     Active Substance: CEFTRIAXONE
     Indication: URINARY TRACT INFECTION
     Dosage: UNK
     Route: 064

REACTIONS (4)
  - Low birth weight baby [Unknown]
  - Foetal exposure during pregnancy [Unknown]
  - Neonatal respiratory distress syndrome [Recovering/Resolving]
  - Premature baby [Unknown]
